FAERS Safety Report 7925471-5 (Version None)
Quarter: 2011Q4

REPORT INFORMATION
  Report Type: 
  Country: None (occurrence: None)
  Receive Date: 20111118
  Receipt Date: 20101122
  Transmission Date: 20120403
  Serious: No
  Sender: FDA-Public Use
  Company Number: US-AMGEN-USASP2010006172

PATIENT
  Age: 55 Year
  Sex: Female

DRUGS (1)
  1. ENBREL [Suspect]
     Indication: PSORIASIS
     Dates: start: 20101104

REACTIONS (4)
  - INJECTION SITE URTICARIA [None]
  - NASAL CONGESTION [None]
  - RHINORRHOEA [None]
  - PRURITUS [None]
